FAERS Safety Report 5577421-7 (Version None)
Quarter: 2007Q4

REPORT INFORMATION
  Report Type: 
  Country: None (occurrence: None)
  Receive Date: 20071228
  Receipt Date: 20071219
  Transmission Date: 20080405
  Serious: Yes (Hospitalization)
  Sender: FDA-Public Use
  Company Number: GB-PFIZER INC-2007107478

PATIENT
  Age: 43 Year
  Sex: Female
  Weight: 52.1 kg

DRUGS (6)
  1. ATORVASTATIN [Suspect]
     Indication: ILL-DEFINED DISORDER
     Route: 065
  2. AMOXICILLIN [Suspect]
     Indication: ILL-DEFINED DISORDER
     Route: 065
  3. METFORMIN HYDROCHLORIDE/ROSIGLITAZONE [Suspect]
     Indication: TYPE 2 DIABETES MELLITUS
     Route: 048
  4. GLICLAZIDE [Suspect]
     Indication: ILL-DEFINED DISORDER
     Route: 065
  5. RAMIPRIL [Suspect]
     Indication: ILL-DEFINED DISORDER
     Route: 065
  6. INSULIN [Concomitant]
     Indication: ILL-DEFINED DISORDER
     Route: 065

REACTIONS (2)
  - ABORTION SPONTANEOUS [None]
  - DRUG EXPOSURE DURING PREGNANCY [None]
